FAERS Safety Report 21890936 (Version 1)
Quarter: 2023Q1

REPORT INFORMATION
  Report Type: Spontaneous
  Country: ES (occurrence: ES)
  Receive Date: 20230120
  Receipt Date: 20230120
  Transmission Date: 20230418
  Serious: Yes (Hospitalization)
  Sender: FDA-Public Use
  Company Number: None

PATIENT
  Age: 86 Year
  Sex: Female

DRUGS (10)
  1. CLOPIDOGREL [Suspect]
     Active Substance: CLOPIDOGREL BISULFATE
     Indication: Cerebrovascular accident
     Dosage: 75.0 MG C/24 H
     Dates: start: 20090507, end: 20220813
  2. CITALOPRAM VIATRIS [Concomitant]
     Indication: Senile dementia
     Dosage: 20.0 MG CE, CITALOPRAM VIATRIS 20 MG FILM-COATED TABLETS EFG, 56 TABLETS
     Dates: start: 20151126
  3. TORSEMIDE [Concomitant]
     Active Substance: TORSEMIDE
     Indication: Cardiac failure
     Dosage: 5.0 MG WITH 48 HOURS, 30 TABLETS
     Dates: start: 20210522
  4. NOLOTIL [Concomitant]
     Indication: Fracture
     Dosage: 575.0 MG DECOCE, 20 CAPSULES
     Dates: start: 20201118
  5. OLANZAPINE CINFA [Concomitant]
     Indication: Senile dementia
     Dosage: 7.5 MG CE, OLANZAPINE CINFA 7.5 MG TABLETS EFG, 56 TABLETS
     Dates: start: 20201222
  6. ATROALDO [Concomitant]
     Indication: Bronchitis
     Dosage: 40.0 MCG C/6 HOURS, STRENGTH : 20 MICROGRAMS/PULSE , PRESSURIZED CONTAINER, 1 INHALER OF 200 DOSES
     Dates: start: 20190523
  7. PARACETAMOL KERN PHARMA [Concomitant]
     Indication: Osteoarthritis
     Dosage: 1.0 G DECOCE, PARACETAMOL KERN PHARMA 1 G EFG TABLETS, 40 TABLETS
     Dates: start: 20190603
  8. CLOMETHIAZOLE [Concomitant]
     Active Substance: CLOMETHIAZOLE
     Indication: Psychotic disorder
     Dosage: 2.0 CAPS CE, DISTRANEURINE 192 MG CAPSULES BLAND, 30 CAPSULES
     Dates: start: 20200615
  9. TRAMADOL CINFA [Concomitant]
     Indication: Arthralgia
     Dosage: 50.0 MG DECOCE, TRAMADOL CINFA 50 MG HARD CAPSULES EFG, 60 CAPSULES
     Dates: start: 20220125
  10. SIMVASTATIN MYLAN PHARMACEUTICAL [Concomitant]
     Indication: Cerebral artery occlusion
     Dosage: 10.0 MG CE, SIMVASTATIN MYLAN PHARMACEUTICALS 10 MG FILM-COATED TABLETS EFG, 28 TABLETS
     Dates: start: 20090610

REACTIONS (2)
  - Lower gastrointestinal haemorrhage [Recovered/Resolved]
  - Rectal haemorrhage [Recovered/Resolved]

NARRATIVE: CASE EVENT DATE: 20220813
